FAERS Safety Report 12164442 (Version 1)
Quarter: 2016Q1

REPORT INFORMATION
  Report Type: Spontaneous
  Country: US (occurrence: US)
  Receive Date: 20160309
  Receipt Date: 20160309
  Transmission Date: 20160526
  Serious: No
  Sender: FDA-Public Use
  Company Number: US-ROCHE-1667142

PATIENT
  Sex: Female

DRUGS (4)
  1. QVAR [Concomitant]
     Active Substance: BECLOMETHASONE DIPROPIONATE
  2. XOLAIR [Suspect]
     Active Substance: OMALIZUMAB
     Indication: ASTHMA
     Route: 065
  3. FLONASE (UNITED STATES) [Concomitant]
  4. AMBIEN [Concomitant]
     Active Substance: ZOLPIDEM TARTRATE

REACTIONS (4)
  - Weight decreased [Unknown]
  - Abdominal distension [Unknown]
  - Drug dose omission [Unknown]
  - Weight increased [Unknown]
